FAERS Safety Report 25699130 (Version 1)
Quarter: 2025Q3

REPORT INFORMATION
  Report Type: Report from Study
  Country: BR (occurrence: BR)
  Receive Date: 20250819
  Receipt Date: 20250819
  Transmission Date: 20251020
  Serious: Yes (Hospitalization, Other)
  Sender: TAKEDA
  Company Number: BR-TAKEDA-2024TUS115940

PATIENT
  Sex: Male
  Weight: 111.8 kg

DRUGS (2)
  1. BRIGATINIB [Suspect]
     Active Substance: BRIGATINIB
     Indication: Product used for unknown indication
  2. BRIGATINIB [Suspect]
     Active Substance: BRIGATINIB

REACTIONS (2)
  - Spinal cord compression [Unknown]
  - Chest pain [Unknown]
